FAERS Safety Report 11330754 (Version 3)
Quarter: 2015Q4

REPORT INFORMATION
  Report Type: Spontaneous
  Country: US (occurrence: US)
  Receive Date: 20150803
  Receipt Date: 20151123
  Transmission Date: 20160304
  Serious: Yes (Hospitalization, Other)
  Sender: FDA-Public Use
  Company Number: US-GLAXOSMITHKLINE-US2015GSK106268

PATIENT
  Age: 58 Year
  Sex: Female

DRUGS (2)
  1. ADVAIR DISKUS [Suspect]
     Active Substance: FLUTICASONE PROPIONATE\SALMETEROL XINAFOATE
     Indication: CHRONIC OBSTRUCTIVE PULMONARY DISEASE
     Dosage: UNK
  2. VENTOLIN HFA [Suspect]
     Active Substance: ALBUTEROL SULFATE
     Indication: CHRONIC OBSTRUCTIVE PULMONARY DISEASE
     Dosage: UNK

REACTIONS (8)
  - Decreased activity [Unknown]
  - Hypercapnia [Unknown]
  - Walking aid user [Unknown]
  - Malaise [Unknown]
  - Hospitalisation [Recovered/Resolved]
  - Chronic obstructive pulmonary disease [Unknown]
  - Nasopharyngitis [Unknown]
  - Rehabilitation therapy [Unknown]

NARRATIVE: CASE EVENT DATE: 201506
